FAERS Safety Report 14260773 (Version 4)
Quarter: 2018Q1

REPORT INFORMATION
  Report Type: Spontaneous
  Country: BR (occurrence: BR)
  Receive Date: 20171207
  Receipt Date: 20180227
  Transmission Date: 20180508
  Serious: Yes (Death, Hospitalization, Other)
  Sender: FDA-Public Use
  Company Number: BR-BIOMARINAP-BR-2017-116326

PATIENT
  Age: 10 Year
  Sex: Female
  Weight: 20 kg

DRUGS (5)
  1. ALDURAZYME [Suspect]
     Active Substance: LARONIDASE
     Indication: MUCOPOLYSACCHARIDOSIS I
     Dosage: UNK, QW
     Route: 041
     Dates: start: 20070201
  2. ALDURAZYME [Suspect]
     Active Substance: LARONIDASE
     Dosage: UNK, QOW
     Route: 041
     Dates: start: 201705
  3. ALDURAZYME [Suspect]
     Active Substance: LARONIDASE
     Dosage: UNK, QOW
     Route: 041
     Dates: start: 2017
  4. ATENSINA [Concomitant]
     Active Substance: CLONIDINE
     Indication: HYPERTENSION
  5. AMLODIPINE [Concomitant]
     Active Substance: AMLODIPINE BESYLATE
     Indication: HYPERTENSION
     Dosage: UNK

REACTIONS (15)
  - Adenoidal disorder [Unknown]
  - Carpal tunnel syndrome [Unknown]
  - Pain [Not Recovered/Not Resolved]
  - Product use issue [Unknown]
  - Corneal disorder [Unknown]
  - Gait disturbance [Unknown]
  - Spinal disorder [Unknown]
  - Blood pressure increased [Not Recovered/Not Resolved]
  - Pneumonia [Fatal]
  - Infection [Fatal]
  - Dental cyst [Unknown]
  - Umbilical hernia [Unknown]
  - Infusion related reaction [Not Recovered/Not Resolved]
  - Hydrocephalus [Unknown]
  - Post procedural complication [Fatal]
